FAERS Safety Report 7643866-4 (Version None)
Quarter: 2011Q3

REPORT INFORMATION
  Report Type: 
  Country: None (occurrence: None)
  Receive Date: 20110729
  Receipt Date: 20100930
  Transmission Date: 20111222
  Serious: No
  Sender: FDA-Public Use
  Company Number: US-GLAXOSMITHKLINE-A0884250A

PATIENT
  Age: 72 Year
  Sex: Male

DRUGS (2)
  1. BLOOD PRESSURE MEDICATION [Concomitant]
  2. SUMATRIPTAN SUCCINATE [Suspect]
     Indication: MIGRAINE
     Dosage: 1TAB SINGLE DOSE
     Route: 048
     Dates: start: 20100701, end: 20100701

REACTIONS (1)
  - SPEECH DISORDER [None]
